FAERS Safety Report 25124640 (Version 1)
Quarter: 2025Q1

REPORT INFORMATION
  Report Type: Report from Study
  Country: AU (occurrence: AU)
  Receive Date: 20250326
  Receipt Date: 20250326
  Transmission Date: 20250409
  Serious: Yes (Other)
  Sender: ABBVIE
  Company Number: AU-ABBVIE-6185716

PATIENT
  Age: 72 Year
  Sex: Female

DRUGS (2)
  1. HUMIRA [Suspect]
     Active Substance: ADALIMUMAB
     Indication: Psoriasis
     Route: 058
     Dates: end: 202503
  2. HUMIRA [Suspect]
     Active Substance: ADALIMUMAB

REACTIONS (5)
  - Blindness transient [Recovered/Resolved]
  - Nausea [Recovered/Resolved]
  - Hepatitis [Recovered/Resolved]
  - Blepharitis [Recovered/Resolved]
  - Dizziness [Recovered/Resolved]

NARRATIVE: CASE EVENT DATE: 20250101
